FAERS Safety Report 20845994 (Version 1)
Quarter: 2022Q2

REPORT INFORMATION
  Report Type: Spontaneous
  Country: US (occurrence: US)
  Receive Date: 20220518
  Receipt Date: 20220518
  Transmission Date: 20220721
  Serious: No
  Sender: FDA-Public Use
  Company Number: US-PFIZER INC-202200091174

PATIENT
  Age: 7 Year
  Sex: Female

DRUGS (2)
  1. ETHOSUXIMIDE [Suspect]
     Active Substance: ETHOSUXIMIDE
     Indication: Petit mal epilepsy
     Dosage: UNK
  2. SODIUM BENZOATE [Suspect]
     Active Substance: SODIUM BENZOATE
     Indication: Petit mal epilepsy
     Dosage: UNK

REACTIONS (2)
  - Reaction to excipient [Unknown]
  - Abdominal pain upper [Unknown]
